FAERS Safety Report 9729864 (Version 2)
Quarter: 2013Q4

REPORT INFORMATION
  Report Type: Spontaneous
  Country: IT (occurrence: None)
  Receive Date: 20131203
  Receipt Date: 20131211
  Transmission Date: 20140711
  Serious: Yes (Hospitalization)
  Sender: FDA-Public Use
  Company Number: AUR-APL-2013-10004

PATIENT
  Age: 69 Year
  Sex: Male
  Weight: 70 kg

DRUGS (3)
  1. LEVOFLOXACIN [Suspect]
     Indication: BRONCHITIS
     Dosage: 1 DOSAGE FORMS, TOTAL, ORAL
     Route: 048
     Dates: start: 20130913, end: 20130917
  2. LEVOFLOXACIN [Suspect]
     Dosage: 1 DOSAGE FORMS, TOTAL, ORAL
     Route: 048
     Dates: start: 20130913, end: 20130917
  3. AVODART (DUTASTERIDE) CAPSULES [Concomitant]

REACTIONS (6)
  - Erythema [None]
  - Skin exfoliation [None]
  - Lip oedema [None]
  - Oedema mucosal [None]
  - Rash [None]
  - Urticaria [None]
